FAERS Safety Report 12152742 (Version 1)
Quarter: 2016Q1

REPORT INFORMATION
  Report Type: Report from Study
  Country: TR (occurrence: TR)
  Receive Date: 20160304
  Receipt Date: 20160304
  Transmission Date: 20160526
  Serious: Yes (Hospitalization, Other)
  Sender: FDA-Public Use
  Company Number: PHHY2016TR027936

PATIENT
  Age: 13 Year
  Sex: Male

DRUGS (1)
  1. SOMATROPIN [Suspect]
     Active Substance: SOMATROPIN
     Indication: GROWTH HORMONE DEFICIENCY
     Dosage: 0.6 MG, QD
     Route: 058
     Dates: start: 20140515, end: 201511

REACTIONS (4)
  - Immunodeficiency [Unknown]
  - Diarrhoea [Unknown]
  - Scoliosis [Unknown]
  - Fungal infection [Unknown]

NARRATIVE: CASE EVENT DATE: 201511
